FAERS Safety Report 23353782 (Version 1)
Quarter: 2024Q1

REPORT INFORMATION
  Report Type: Spontaneous
  Country: US (occurrence: US)
  Receive Date: 20240101
  Receipt Date: 20240101
  Transmission Date: 20240409
  Serious: No
  Sender: FDA-Public Use
  Company Number: US-PURDUE-USA-2023-0305606

PATIENT
  Age: 49 Year
  Sex: Female
  Weight: 67.12 kg

DRUGS (8)
  1. ACETAMINOPHEN\OXYCODONE HYDROCHLORIDE [Suspect]
     Active Substance: ACETAMINOPHEN\OXYCODONE HYDROCHLORIDE
     Indication: Pain management
     Dosage: TID (THREE TIMES A DAY)
     Route: 048
  2. METHOTREXATE [Concomitant]
     Active Substance: METHOTREXATE
     Indication: Lupus-like syndrome
     Dosage: 50 MG, WEEKLY (ONCE WEEK)
     Route: 050
  3. TIZANIDINE HYDROCHLORIDE [Concomitant]
     Active Substance: TIZANIDINE HYDROCHLORIDE
     Indication: Muscle relaxant therapy
     Dosage: BID, (TWICE A DAY)
     Route: 048
  4. DULOXETINE HYDROCHLORIDE [Concomitant]
     Active Substance: DULOXETINE HYDROCHLORIDE
     Indication: Sleep disorder
     Dosage: ONCE DAILY
     Route: 048
  5. AMLODIPINE [Concomitant]
     Active Substance: AMLODIPINE BESYLATE
     Indication: Hypertension
     Dosage: DAILY
     Route: 048
  6. DRONABINOL [Concomitant]
     Active Substance: DRONABINOL
     Indication: Nausea
     Dosage: 2 CAPSULES, ONCE DAILY
     Route: 048
  7. DRONABINOL [Concomitant]
     Active Substance: DRONABINOL
     Indication: Eating disorder
  8. BENLYSTA [Concomitant]
     Active Substance: BELIMUMAB
     Indication: Lupus-like syndrome
     Dosage: 200 MILLIGRAM, WEEKLY(ONCE WEEKLY)
     Route: 050

REACTIONS (1)
  - Drug ineffective [Not Recovered/Not Resolved]

NARRATIVE: CASE EVENT DATE: 20231001
